FAERS Safety Report 9330580 (Version 2)
Quarter: 2013Q3

REPORT INFORMATION
  Report Type: Spontaneous
  Country: US (occurrence: US)
  Receive Date: 20130605
  Receipt Date: 20130718
  Transmission Date: 20140515
  Serious: Yes (Other)
  Sender: FDA-Public Use
  Company Number: PHEH2013US012062

PATIENT
  Age: 80 Year
  Sex: Female

DRUGS (2)
  1. RECLAST [Suspect]
     Dosage: UNK
     Route: 042
     Dates: start: 20130521
  2. PREDNISONE TABLETS [Suspect]
     Dosage: UNK

REACTIONS (2)
  - Cognitive disorder [Unknown]
  - Renal disorder [Unknown]
